FAERS Safety Report 13986043 (Version 1)
Quarter: 2017Q3

REPORT INFORMATION
  Report Type: Spontaneous
  Country: US (occurrence: None)
  Receive Date: 20170919
  Receipt Date: 20170919
  Transmission Date: 20171128
  Serious: Yes (Other)
  Sender: FDA-Public Use
  Company Number: None

PATIENT
  Sex: Male

DRUGS (1)
  1. CREST 3D WHITE WHITESTRIPS DENTAL [Suspect]
     Active Substance: HYDROGEN PEROXIDE
     Dosage: DATES OF USE - UNKNOWN USE 1 KIT OVER 8 MONTHS?ROUTE - INTRAORAL

REACTIONS (2)
  - Tooth loss [None]
  - Enamel anomaly [None]
